FAERS Safety Report 8974862 (Version 1)
Quarter: 2012Q4

REPORT INFORMATION
  Report Type: 
  Country: US (occurrence: US)
  Receive Date: 20121219
  Receipt Date: 20121219
  Transmission Date: 20130627
  Serious: No
  Sender: FDA-Public Use
  Company Number: US-MYLANLABS-2011S1008212

PATIENT
  Age: 75 Year
  Sex: Female
  Weight: 77.57 kg

DRUGS (3)
  1. PANTOPRAZOLE SODIUM [Suspect]
     Indication: GASTROOESOPHAGEAL REFLUX DISEASE
     Route: 048
     Dates: start: 201103
  2. AVAPRO [Concomitant]
     Indication: BLOOD PRESSURE INCREASED
  3. BENADRYL [Concomitant]
     Indication: MULTIPLE ALLERGIES

REACTIONS (2)
  - Rash generalised [Recovering/Resolving]
  - Nausea [Not Recovered/Not Resolved]
